FAERS Safety Report 26206214 (Version 1)
Quarter: 2025Q4

REPORT INFORMATION
  Report Type: Spontaneous
  Country: CN (occurrence: CN)
  Receive Date: 20251229
  Receipt Date: 20251229
  Transmission Date: 20260117
  Serious: Yes (Other)
  Sender: SANOFI AVENTIS
  Company Number: CN-DialogSolutions-SAAVPROD-PI849904-C1

PATIENT
  Age: 44 Year
  Sex: Male

DRUGS (18)
  1. OXALIPLATIN [Suspect]
     Active Substance: OXALIPLATIN
     Indication: Adenocarcinoma gastric stage IV
     Dosage: UNK, QCY
     Dates: start: 2022, end: 2023
  2. OXALIPLATIN [Suspect]
     Active Substance: OXALIPLATIN
     Indication: Metastases to liver
     Dosage: UNK, QOW, INFUSION
     Dates: start: 202305, end: 2023
  3. DOCETAXEL [Suspect]
     Active Substance: DOCETAXEL
     Indication: Adenocarcinoma gastric stage IV
     Dosage: UNK, QOW
     Dates: start: 202305
  4. DOCETAXEL [Suspect]
     Active Substance: DOCETAXEL
     Indication: Metastases to liver
  5. FLUOROURACIL [Suspect]
     Active Substance: FLUOROURACIL
     Indication: Adenocarcinoma gastric stage IV
     Dosage: UNK, QOW
     Dates: start: 202305
  6. FLUOROURACIL [Suspect]
     Active Substance: FLUOROURACIL
     Indication: Metastases to liver
  7. LEUCOVORIN [Suspect]
     Active Substance: LEUCOVORIN\LEUCOVORIN CALCIUM
     Indication: Adenocarcinoma gastric stage IV
     Dosage: UNK, QOW
     Dates: start: 202305
  8. LEUCOVORIN [Suspect]
     Active Substance: LEUCOVORIN\LEUCOVORIN CALCIUM
     Indication: Metastases to liver
  9. SINTILIMAB [Suspect]
     Active Substance: SINTILIMAB
     Indication: Adenocarcinoma gastric stage IV
     Dosage: 200 MG, QD (ON DAY 1)
     Dates: start: 202305, end: 202305
  10. SINTILIMAB [Suspect]
     Active Substance: SINTILIMAB
     Indication: Metastases to liver
  11. PACLITAXEL [Concomitant]
     Active Substance: PACLITAXEL
     Indication: Adenocarcinoma gastric stage IV
     Dosage: 300 MG, QCY (ON DAY 1)
     Dates: start: 20230209, end: 2023
  12. PACLITAXEL [Concomitant]
     Active Substance: PACLITAXEL
     Indication: Metastases to liver
  13. TEGAFUR [Concomitant]
     Active Substance: TEGAFUR
     Indication: Adenocarcinoma gastric stage IV
     Dosage: UNK, QCY
     Dates: start: 2022, end: 2023
  14. TEGAFUR [Concomitant]
     Active Substance: TEGAFUR
     Indication: Metastases to liver
     Dosage: 60 MG, BID, DAYS 1-14
     Dates: start: 20230209, end: 2023
  15. GIMERACIL [Concomitant]
     Active Substance: GIMERACIL
     Indication: Adenocarcinoma gastric stage IV
     Dosage: UNK, QCY
     Dates: start: 2022, end: 2023
  16. GIMERACIL [Concomitant]
     Active Substance: GIMERACIL
     Indication: Metastases to liver
     Dosage: 60 MG, BID, DAYS 1-14
     Dates: start: 20230209, end: 2023
  17. OTERACIL [Concomitant]
     Active Substance: OTERACIL
     Indication: Adenocarcinoma gastric stage IV
     Dosage: UNK, QCY
     Dates: start: 2022, end: 2023
  18. OTERACIL [Concomitant]
     Active Substance: OTERACIL
     Indication: Metastases to liver
     Dosage: 60 MG, BID, DAY 1-14
     Dates: start: 20230209, end: 2023

REACTIONS (7)
  - Myelosuppression [Unknown]
  - Pyrexia [Unknown]
  - Hypersensitivity [Unknown]
  - Flushing [Unknown]
  - Pruritus [Unknown]
  - Abdominal pain [Unknown]
  - Off label use [Unknown]

NARRATIVE: CASE EVENT DATE: 20220101
